FAERS Safety Report 4886724-0 (Version None)
Quarter: 2006Q1

REPORT INFORMATION
  Report Type: 
  Country: None (occurrence: None)
  Receive Date: 20060120
  Receipt Date: 20051026
  Transmission Date: 20060701
  Serious: Yes (Hospitalization)
  Sender: FDA-Public Use
  Company Number: ZA-ROCHE-422535

PATIENT
  Age: 63 Year
  Sex: Male
  Weight: 94 kg

DRUGS (10)
  1. RIBAVIRIN [Suspect]
     Route: 048
     Dates: start: 20050921, end: 20051018
  2. RIBAVIRIN [Suspect]
     Route: 048
     Dates: start: 20051019
  3. RIBAVIRIN [Suspect]
     Route: 048
     Dates: start: 20051027, end: 20060109
  4. PEG-INTERFERON ALFA 2A (RO 25-8310) [Suspect]
     Route: 058
     Dates: start: 20050921, end: 20051026
  5. PEG-INTERFERON ALFA 2A (RO 25-8310) [Suspect]
     Route: 058
     Dates: start: 20051027, end: 20051228
  6. LIPITOR [Concomitant]
  7. ZINK [Concomitant]
  8. GLUCOPHAGE [Concomitant]
  9. WARFARIN [Concomitant]
  10. NEUPOGEN [Concomitant]

REACTIONS (2)
  - LISTERIA SEPSIS [None]
  - NEUTROPENIA [None]
